FAERS Safety Report 14955288 (Version 1)
Quarter: 2018Q2

REPORT INFORMATION
  Report Type: Report from Study
  Country: CO (occurrence: CO)
  Receive Date: 20180531
  Receipt Date: 20180531
  Transmission Date: 20180711
  Serious: Yes (Hospitalization)
  Sender: FDA-Public Use
  Company Number: CO-ROCHE-2129889

PATIENT
  Sex: Female
  Weight: 43 kg

DRUGS (1)
  1. XOLAIR [Suspect]
     Active Substance: OMALIZUMAB
     Indication: ASTHMA
     Route: 058
     Dates: end: 20171011

REACTIONS (2)
  - Anaphylactic shock [Recovering/Resolving]
  - Incorrect drug administration rate [Unknown]
